FAERS Safety Report 4299447-6 (Version None)
Quarter: 2004Q1

REPORT INFORMATION
  Report Type: 
  Country: None (occurrence: None)
  Receive Date: 20040217
  Receipt Date: 20040202
  Transmission Date: 20041129
  Serious: Yes (Other)
  Sender: FDA-Public Use
  Company Number: 2003-06163

PATIENT
  Age: 47 Year
  Sex: Male
  Weight: 68.0396 kg

DRUGS (4)
  1. TENOFOVIR DF [Suspect]
     Indication: HIV INFECTION
     Dosage: 300 MG QD PO
     Route: 048
     Dates: start: 20021223, end: 20030923
  2. LAMIVUDINE [Concomitant]
  3. NEVIRAPINE [Concomitant]
  4. KALETRA [Concomitant]

REACTIONS (14)
  - ALANINE AMINOTRANSFERASE INCREASED [None]
  - ASPARTATE AMINOTRANSFERASE INCREASED [None]
  - BACTERAEMIA [None]
  - BILIRUBIN CONJUGATED INCREASED [None]
  - BLOOD ALKALINE PHOSPHATASE INCREASED [None]
  - BLOOD AMYLASE INCREASED [None]
  - BLOOD BILIRUBIN INCREASED [None]
  - BLOOD LACTATE DEHYDROGENASE INCREASED [None]
  - DRUG ABUSER [None]
  - GAMMA-GLUTAMYLTRANSFERASE INCREASED [None]
  - HEPATITIS C ANTIBODY POSITIVE [None]
  - LIPASE INCREASED [None]
  - PNEUMONIA PNEUMOCOCCAL [None]
  - TREATMENT NONCOMPLIANCE [None]
